FAERS Safety Report 4667055-0 (Version None)
Quarter: 2005Q2

REPORT INFORMATION
  Report Type: 
  Country: None (occurrence: None)
  Receive Date: 20050520
  Receipt Date: 20041122
  Transmission Date: 20051028
  Serious: Yes (Other)
  Sender: FDA-Public Use
  Company Number: PHEH2004US12604

PATIENT
  Age: 74 Year
  Sex: Female

DRUGS (7)
  1. VINCRISTINE + ADRIAMYCIN + DEXAMETHASONE [Concomitant]
     Dosage: 4 CYCLES
     Dates: start: 20040112, end: 20040405
  2. VINCRISTINE [Concomitant]
     Dosage: 5 CYCLES (2 MG)
     Dates: start: 20040505, end: 20041116
  3. CYTOXAN [Concomitant]
     Dosage: 600 MG, ONCE/SINGLE
     Dates: start: 20040505, end: 20040505
  4. CYTOXAN [Concomitant]
     Dosage: 4 CYCLES (648 MG)
     Dates: start: 20040623, end: 20041116
  5. CARMUSTINE [Concomitant]
     Dosage: 30 MG, ONCE/SINGLE
     Dates: start: 20040505, end: 20040505
  6. CARMUSTINE [Concomitant]
     Dosage: 4 CYCLES (32 MG)
     Dates: start: 20040623, end: 20041116
  7. AREDIA [Suspect]
     Indication: MULTIPLE MYELOMA
     Dosage: 90 MG, QMO
     Dates: start: 20020826, end: 20041116

REACTIONS (6)
  - ASEPTIC NECROSIS BONE [None]
  - BONE DISORDER [None]
  - ENDODONTIC PROCEDURE [None]
  - PLATELET DISORDER [None]
  - TOOTH DISORDER [None]
  - TOOTHACHE [None]
